FAERS Safety Report 8428480-5 (Version None)
Quarter: 2012Q2

REPORT INFORMATION
  Report Type: 
  Country: None (occurrence: None)
  Receive Date: 20120612
  Receipt Date: 20120606
  Transmission Date: 20120825
  Serious: No
  Sender: FDA-Public Use
  Company Number: US-PFIZER INC-2012109523

PATIENT
  Sex: Female
  Weight: 86 kg

DRUGS (3)
  1. FLECTOR [Suspect]
     Indication: LIGAMENT SPRAIN
  2. FLECTOR [Suspect]
     Indication: MUSCULOSKELETAL PAIN
  3. FLECTOR [Suspect]
     Indication: PAIN IN EXTREMITY
     Dosage: UNK, AS NEEDED
     Route: 061
     Dates: start: 20120401

REACTIONS (1)
  - DRUG INEFFECTIVE [None]
